FAERS Safety Report 8541900 (Version 3)
Quarter: 2014Q2

REPORT INFORMATION
  Report Type: Spontaneous
  Country: US (occurrence: US)
  Receive Date: 20120502
  Receipt Date: 20140613
  Transmission Date: 20141212
  Serious: Yes (Other)
  Sender: FDA-Public Use
  Company Number: US-AMGEN-USASP2012020925

PATIENT
  Age: 69 Year
  Sex: Male
  Weight: 85.26 kg

DRUGS (2)
  1. ENBREL [Suspect]
     Indication: RHEUMATOID ARTHRITIS
     Dosage: 50 MG, QWK
     Route: 058
     Dates: start: 20030623, end: 20120227
  2. METHOTREXATE [Suspect]
     Indication: RHEUMATOID ARTHRITIS
     Dosage: 10 MG, QWK
     Route: 048
     Dates: start: 20030520, end: 20120507

REACTIONS (11)
  - Squamous cell carcinoma [Not Recovered/Not Resolved]
  - Haematological malignancy [Unknown]
  - Rheumatoid arthritis [Unknown]
  - Skin cancer [Recovered/Resolved]
  - Joint stiffness [Not Recovered/Not Resolved]
  - Musculoskeletal pain [Recovered/Resolved]
  - Pain in extremity [Recovered/Resolved]
  - Swelling [Recovered/Resolved]
  - Pain [Recovered/Resolved]
  - Mobility decreased [Recovered/Resolved]
  - Arthralgia [Not Recovered/Not Resolved]
